FAERS Safety Report 4733964-7 (Version None)
Quarter: 2005Q3

REPORT INFORMATION
  Report Type: 
  Country: None (occurrence: None)
  Receive Date: 20050721
  Receipt Date: 20050511
  Transmission Date: 20060218
  Serious: No
  Sender: FDA-Public Use
  Company Number: 2005SP000711

PATIENT
  Age: 49 Year
  Sex: Female
  Weight: 51.7101 kg

DRUGS (1)
  1. LUNESTA [Suspect]
     Dosage: 2 MG;HS; ORAL
     Route: 048
     Dates: start: 20050507

REACTIONS (4)
  - APHONIA [None]
  - DYSGEUSIA [None]
  - DYSPHONIA [None]
  - THROAT TIGHTNESS [None]
